FAERS Safety Report 7900290-4 (Version None)
Quarter: 2011Q4

REPORT INFORMATION
  Report Type: 
  Country: None (occurrence: None)
  Receive Date: 20111108
  Receipt Date: 20111031
  Transmission Date: 20120403
  Serious: Yes (Death)
  Sender: FDA-Public Use
  Company Number: US-CELGENEUS-163-21880-11100552

PATIENT
  Sex: Female
  Weight: 52.664 kg

DRUGS (1)
  1. REVLIMID [Suspect]
     Dosage: 5 MILLIGRAM
     Route: 048
     Dates: start: 20110901

REACTIONS (5)
  - PYREXIA [None]
  - OROPHARYNGEAL PAIN [None]
  - HEADACHE [None]
  - PAIN [None]
  - DEATH [None]
